FAERS Safety Report 6056522-3 (Version None)
Quarter: 2009Q1

REPORT INFORMATION
  Report Type: 
  Country: None (occurrence: None)
  Receive Date: 20090129
  Receipt Date: 20080701
  Transmission Date: 20090719
  Serious: No
  Sender: FDA-Public Use
  Company Number: A0735590A

PATIENT
  Age: 62 Year
  Sex: Male

DRUGS (5)
  1. COMBIVIR [Suspect]
     Indication: HIV INFECTION
     Route: 048
     Dates: start: 20080627
  2. SUSTIVA [Concomitant]
  3. ASPIRIN [Concomitant]
  4. INSULIN [Concomitant]
  5. AVANDAMET [Concomitant]

REACTIONS (1)
  - ABDOMINAL PAIN [None]
